FAERS Safety Report 20600474 (Version 2)
Quarter: 2022Q2

REPORT INFORMATION
  Report Type: Spontaneous
  Country: US (occurrence: US)
  Receive Date: 20220316
  Receipt Date: 20220502
  Transmission Date: 20220720
  Serious: Yes (Death, Other)
  Sender: FDA-Public Use
  Company Number: US-SA-SAC20220311001319

PATIENT
  Age: 46 Year
  Sex: Female

DRUGS (1)
  1. ZANTAC [Suspect]
     Active Substance: RANITIDINE HYDROCHLORIDE
     Indication: Dyspepsia
     Dosage: UNKNOWN

REACTIONS (3)
  - Bladder cancer stage IV [Fatal]
  - Colorectal cancer stage III [Fatal]
  - Gastric cancer [Unknown]

NARRATIVE: CASE EVENT DATE: 20000101
